FAERS Safety Report 20992327 (Version 4)
Quarter: 2022Q3

REPORT INFORMATION
  Report Type: Spontaneous
  Country: US (occurrence: US)
  Receive Date: 20220622
  Receipt Date: 20220727
  Transmission Date: 20221027
  Serious: No
  Sender: FDA-Public Use
  Company Number: US-PFIZER INC-PV202200006542

PATIENT
  Age: 91 Year
  Sex: Male

DRUGS (2)
  1. INLYTA [Suspect]
     Active Substance: AXITINIB
     Dosage: 5 MG
  2. INLYTA [Suspect]
     Active Substance: AXITINIB
     Dosage: 3 MG, 2X/DAY

REACTIONS (8)
  - Fatigue [Unknown]
  - Dizziness [Unknown]
  - Insomnia [Unknown]
  - Asthenia [Unknown]
  - Initial insomnia [Unknown]
  - Sleep deficit [Unknown]
  - Weight decreased [Unknown]
  - Nausea [Recovering/Resolving]
